FAERS Safety Report 7190067-2 (Version None)
Quarter: 2010Q4

REPORT INFORMATION
  Report Type: 
  Country: None (occurrence: None)
  Receive Date: 20101223
  Receipt Date: 20101214
  Transmission Date: 20110411
  Serious: Yes (Hospitalization)
  Sender: FDA-Public Use
  Company Number: JP-PFIZER INC-2010177227

PATIENT
  Age: 75 Year
  Sex: Male

DRUGS (14)
  1. ANCARON [Suspect]
     Indication: VENTRICULAR TACHYCARDIA
     Dosage: 100 MG, 2X/DAY
     Route: 048
     Dates: start: 20100524, end: 20100101
  2. ANCARON [Suspect]
     Dosage: 100 MG, 1X/DAY
     Route: 048
     Dates: start: 20100101
  3. LASIX [Concomitant]
     Dosage: UNK
  4. ALDACTONE [Concomitant]
     Dosage: UNK
  5. ASPIRIN [Concomitant]
     Dosage: UNK
  6. PARIET [Concomitant]
     Dosage: UNK
  7. SIGMART [Concomitant]
     Dosage: UNK
  8. AMOBAN [Concomitant]
     Dosage: UNK
  9. DIOVANE [Concomitant]
     Dosage: UNK
  10. FLUVASTATIN [Concomitant]
     Dosage: UNK
  11. ARTIST [Concomitant]
     Dosage: UNK
  12. PLETAL [Concomitant]
     Dosage: UNK
  13. WARFARIN [Concomitant]
     Dosage: UNK
  14. CALBLOCK [Suspect]

REACTIONS (1)
  - HYPONATRAEMIA [None]
